FAERS Safety Report 4888321-X (Version None)
Quarter: 2006Q1

REPORT INFORMATION
  Report Type: 
  Country: None (occurrence: None)
  Receive Date: 20060123
  Receipt Date: 20060109
  Transmission Date: 20060701
  Serious: Yes (Other)
  Sender: FDA-Public Use
  Company Number: B0406127A

PATIENT
  Age: 28 Year
  Sex: Female

DRUGS (2)
  1. ROPINIROLE [Suspect]
     Indication: RESTLESS LEGS SYNDROME
     Dosage: 1MG PER DAY
     Route: 048
     Dates: start: 20051224
  2. CERAZETTE [Concomitant]
     Indication: CONTRACEPTION
     Dosage: 1TAB PER DAY
     Route: 048

REACTIONS (3)
  - MENSTRUAL DISORDER [None]
  - THROMBOSIS [None]
  - VAGINAL HAEMORRHAGE [None]
